FAERS Safety Report 12329932 (Version 1)
Quarter: 2016Q2

REPORT INFORMATION
  Report Type: Spontaneous
  Country: US (occurrence: US)
  Receive Date: 20160504
  Receipt Date: 20160504
  Transmission Date: 20160815
  Serious: Yes (Other)
  Sender: FDA-Public Use
  Company Number: PHHY2016US058437

PATIENT
  Age: 72 Year
  Sex: Female

DRUGS (1)
  1. HYDROCHLOROTHIAZIDE. [Suspect]
     Active Substance: HYDROCHLOROTHIAZIDE
     Indication: HYPERTENSION
     Dosage: 25 MG, QD
     Route: 065

REACTIONS (6)
  - Polyuria [Recovering/Resolving]
  - Nephrogenic diabetes insipidus [Unknown]
  - Asthenia [Recovering/Resolving]
  - Dehydration [Recovering/Resolving]
  - Muscle spasms [Recovering/Resolving]
  - Hypokalaemia [Recovering/Resolving]
